FAERS Safety Report 13441797 (Version 1)
Quarter: 2017Q2

REPORT INFORMATION
  Report Type: Report from Study
  Country: US (occurrence: US)
  Receive Date: 20170414
  Receipt Date: 20170414
  Transmission Date: 20170830
  Serious: Yes (Other)
  Sender: FDA-Public Use
  Company Number: US-UCBSA-2017013448

PATIENT
  Age: 3 Year
  Sex: Male
  Weight: 4.5 kg

DRUGS (24)
  1. KEFLEX [Concomitant]
     Active Substance: CEPHALEXIN
     Indication: SKIN INFECTION
     Dosage: 4 DF, ONCE DAILY (QD)
     Route: 064
     Dates: start: 20110908, end: 20110918
  2. TYLENOL [Concomitant]
     Active Substance: ACETAMINOPHEN
     Indication: PAIN
     Dosage: 2 DF, AS NEEDED (PRN)
     Route: 064
     Dates: start: 20110715, end: 20111220
  3. IRON [Concomitant]
     Active Substance: IRON
     Indication: SKIN INFECTION
     Dosage: 1 DF, ONCE DAILY (QD)
     Route: 064
     Dates: start: 20111121, end: 20120207
  4. FLOVENT [Concomitant]
     Active Substance: FLUTICASONE PROPIONATE
     Indication: ASTHMA
     Dosage: 220 ?G, 2X/DAY (BID)
     Route: 064
     Dates: start: 20110520, end: 20111001
  5. PROTONIX [Concomitant]
     Active Substance: PANTOPRAZOLE SODIUM
     Indication: PRODUCT USED FOR UNKNOWN INDICATION
     Dosage: 40 MG, ONCE DAILY (QD)
     Route: 064
     Dates: start: 20111116, end: 20111220
  6. PROTONIX [Concomitant]
     Active Substance: PANTOPRAZOLE SODIUM
     Dosage: 80 MG, ONCE DAILY (QD)
     Route: 064
     Dates: start: 20111221, end: 20120207
  7. VITAMIN D [Concomitant]
     Active Substance: CHOLECALCIFEROL
     Indication: PRODUCT USED FOR UNKNOWN INDICATION
     Dosage: 1000 IU, ONCE DAILY (QD)
     Route: 064
     Dates: start: 20110712, end: 20120207
  8. BABY ASPIRIN [Concomitant]
     Active Substance: ASPIRIN
     Indication: PLATELET COUNT INCREASED
     Dosage: 81 MG, ONCE DAILY (QD)
     Route: 064
     Dates: start: 20110520, end: 20111206
  9. KEFLEX [Concomitant]
     Active Substance: CEPHALEXIN
     Dosage: 1 DF, ONCE DAILY (QD)
     Route: 064
     Dates: start: 20110930, end: 20111006
  10. TYLENOL [Concomitant]
     Active Substance: ACETAMINOPHEN
     Dosage: 2 DF, ONCE DAILY (QD)
     Route: 064
     Dates: start: 20110710, end: 20110710
  11. VITAMIN C [Concomitant]
     Active Substance: ASCORBIC ACID
     Indication: PRODUCT USED FOR UNKNOWN INDICATION
     Dosage: 1 DF, ONCE DAILY (QD)
     Route: 064
     Dates: start: 20110712, end: 20120207
  12. APRISO [Concomitant]
     Active Substance: MESALAMINE
     Indication: CROHN^S DISEASE
     Dosage: 0.75 G, 2X/DAY (BID)
     Route: 064
     Dates: start: 20110520, end: 20120207
  13. FLU [Concomitant]
     Active Substance: INFLUENZA VIRUS VACCINE
     Indication: ASTHMA
     Dosage: 1 DF, ONCE DAILY (QD)
     Route: 064
     Dates: start: 20111102, end: 20111102
  14. PROTOPIC [Concomitant]
     Active Substance: TACROLIMUS
     Indication: PRODUCT USED FOR UNKNOWN INDICATION
     Dosage: UNK, AS NEEDED (PRN)
     Route: 064
     Dates: start: 20110520, end: 20120207
  15. CAFFEINE. [Concomitant]
     Active Substance: CAFFEINE
     Indication: PRODUCT USED FOR UNKNOWN INDICATION
     Dosage: UNK
     Dates: start: 20110520, end: 20120207
  16. ALBUTEROL. [Concomitant]
     Active Substance: ALBUTEROL
     Indication: ASTHMA
     Dosage: AS NEEDED (PRN), BUT TAKES 2 PUFFS ~3X Q WEEK
     Route: 064
     Dates: start: 20110520, end: 20120207
  17. BETAMETHASONE DIPROPIONATE W/CALCIPOTRIOL [Concomitant]
     Indication: PRODUCT USED FOR UNKNOWN INDICATION
     Dosage: UNK, AS NEEDED (PRN)
     Route: 064
     Dates: start: 20110520, end: 20120207
  18. KEFLEX [Concomitant]
     Active Substance: CEPHALEXIN
     Dosage: 1 DF, ONCE DAILY (QD)
     Route: 064
     Dates: start: 20111031, end: 20111107
  19. OMEPRAZOLE. [Concomitant]
     Active Substance: OMEPRAZOLE
     Indication: PRODUCT USED FOR UNKNOWN INDICATION
     Dosage: 60 MG, ONCE DAILY (QD) (TAKES 40MG, 1-2X PER DAY)
     Route: 064
     Dates: start: 20110520, end: 20111115
  20. CERTOLIZUMAB PEGOL RA [Suspect]
     Active Substance: CERTOLIZUMAB PEGOL
     Indication: CROHN^S DISEASE
     Dosage: 400 MG, MONTHLY (QM)
     Route: 064
     Dates: start: 20110520, end: 20120207
  21. FLONASE [Concomitant]
     Active Substance: FLUTICASONE PROPIONATE
     Indication: HYPERSENSITIVITY
     Dosage: 2 DF, 2X/DAY (BID)
     Route: 064
     Dates: start: 20110520, end: 20111012
  22. MERCAPTOPURIN [Concomitant]
     Active Substance: MERCAPTOPURINE
     Indication: CROHN^S DISEASE
     Dosage: 150 MG, ONCE DAILY (QD)
     Route: 064
     Dates: start: 20110520, end: 20120207
  23. PRENATAL VITAMINS [Concomitant]
     Active Substance: VITAMINS
     Indication: PRODUCT USED FOR UNKNOWN INDICATION
     Dosage: 1 DF, ONCE DAILY (QD)
     Route: 064
     Dates: start: 20110520, end: 20120207
  24. ZYRTEC [Concomitant]
     Active Substance: CETIRIZINE HYDROCHLORIDE
     Indication: HYPERSENSITIVITY
     Dosage: 10 MG, ONCE DAILY (QD)
     Route: 064
     Dates: start: 20110520, end: 20120207

REACTIONS (2)
  - Speech disorder developmental [Unknown]
  - Foetal exposure during pregnancy [Unknown]

NARRATIVE: CASE EVENT DATE: 20110520
